FAERS Safety Report 6238834-3 (Version None)
Quarter: 2009Q2

REPORT INFORMATION
  Report Type: 
  Country: None (occurrence: None)
  Receive Date: 20090622
  Receipt Date: 20090610
  Transmission Date: 20091009
  Serious: Yes (Other)
  Sender: FDA-Public Use
  Company Number: IE-PFIZER INC-2009225585

PATIENT
  Age: 69 Year

DRUGS (8)
  1. LYRICA [Suspect]
     Indication: NEURALGIA
     Dosage: 200 MG, UNK
     Route: 048
  2. OXYCODONE [Concomitant]
  3. HYDROMORPHONE HYDROCHLORIDE [Concomitant]
  4. MORPHINE [Concomitant]
  5. AMITRIPTYLINE [Concomitant]
  6. RANITIDINE [Concomitant]
  7. TRANEXAMIC ACID [Concomitant]
  8. SODIUM PICOSULFATE [Concomitant]

REACTIONS (1)
  - NEUROTOXICITY [None]
